FAERS Safety Report 10521447 (Version 1)
Quarter: 2014Q4

REPORT INFORMATION
  Report Type: Spontaneous
  Country: US (occurrence: None)
  Receive Date: 20141001
  Receipt Date: 20141001
  Transmission Date: 20150528
  Serious: Yes (Life-Threatening, Hospitalization)
  Sender: FDA-Public Use
  Company Number: 1307USA006345

PATIENT
  Age: 33 Year
  Sex: Male
  Weight: 108.8 kg

DRUGS (2)
  1. SAPHRIS [Suspect]
     Active Substance: ASENAPINE MALEATE
     Route: 060
     Dates: start: 20101123, end: 201111
  2. INVEGA [Suspect]
     Active Substance: PALIPERIDONE

REACTIONS (5)
  - Diabetic hyperosmolar coma [None]
  - Hyperglycaemia [None]
  - Increased appetite [None]
  - Diabetes mellitus [None]
  - Memory impairment [None]

NARRATIVE: CASE EVENT DATE: 201202
